FAERS Safety Report 8369624-3 (Version None)
Quarter: 2012Q2

REPORT INFORMATION
  Report Type: 
  Country: None (occurrence: None)
  Receive Date: 20120516
  Receipt Date: 20120516
  Transmission Date: 20120825
  Serious: Yes (Other)
  Sender: FDA-Public Use
  Company Number: None

PATIENT
  Age: 15 Year
  Sex: Male
  Weight: 52.6173 kg

DRUGS (1)
  1. SULFAMETHOXAZOLE AND TRIMETHOPRIM [Suspect]

REACTIONS (6)
  - WHITE BLOOD CELL COUNT DECREASED [None]
  - PETECHIAE [None]
  - RASH GENERALISED [None]
  - PLATELET COUNT DECREASED [None]
  - PYREXIA [None]
  - COAGULATION TIME ABNORMAL [None]
